FAERS Safety Report 10157344 (Version 2)
Quarter: 2014Q2

REPORT INFORMATION
  Report Type: Spontaneous
  Country: JP (occurrence: JP)
  Receive Date: 20140507
  Receipt Date: 20140602
  Transmission Date: 20141212
  Serious: Yes (Other)
  Sender: FDA-Public Use
  Company Number: JP-SA-2014SA055853

PATIENT
  Age: 72 Year
  Sex: Male

DRUGS (10)
  1. BCG FOR IMMUNOTHERAPY [Suspect]
     Indication: BLADDER CANCER
     Route: 043
  2. BCG FOR IMMUNOTHERAPY [Suspect]
     Indication: BLADDER CANCER
     Route: 043
  3. BCG FOR IMMUNOTHERAPY [Suspect]
     Indication: BLADDER CANCER
     Route: 043
  4. BCG FOR IMMUNOTHERAPY [Suspect]
     Indication: BLADDER CANCER
     Route: 043
  5. BCG FOR IMMUNOTHERAPY [Suspect]
     Indication: BLADDER CANCER
     Route: 043
  6. BCG FOR IMMUNOTHERAPY [Suspect]
     Indication: BLADDER CANCER
     Route: 043
  7. BCG FOR IMMUNOTHERAPY [Suspect]
     Indication: BLADDER CANCER
     Route: 043
  8. BCG FOR IMMUNOTHERAPY [Suspect]
     Route: 065
  9. BIOTIN [Concomitant]
     Indication: SAPHO SYNDROME
     Route: 065
  10. ALENDRONIC ACID [Concomitant]
     Indication: SAPHO SYNDROME
     Route: 048

REACTIONS (5)
  - Peptic ulcer [Recovering/Resolving]
  - Abscess intestinal [Recovering/Resolving]
  - Aphthous stomatitis [Recovering/Resolving]
  - Polyarthritis [Recovered/Resolved]
  - Erythema nodosum [Recovered/Resolved]
